APPROVED DRUG PRODUCT: MYCOPHENOLATE MOFETIL
Active Ingredient: MYCOPHENOLATE MOFETIL
Strength: 500MG
Dosage Form/Route: TABLET;ORAL
Application: A090499 | Product #001
Applicant: APOTEX INC
Approved: Apr 22, 2009 | RLD: No | RS: No | Type: DISCN